FAERS Safety Report 7379141-5 (Version None)
Quarter: 2011Q1

REPORT INFORMATION
  Report Type: 
  Country: None (occurrence: None)
  Receive Date: 20110328
  Receipt Date: 20110315
  Transmission Date: 20110831
  Serious: Yes (Hospitalization)
  Sender: FDA-Public Use
  Company Number: PHHY2011IE21485

PATIENT
  Sex: Female

DRUGS (2)
  1. VORICONAZOLE [Concomitant]
  2. CYCLOSPORINE [Suspect]

REACTIONS (2)
  - APLASTIC ANAEMIA [None]
  - IMMUNOSUPPRESSANT DRUG LEVEL INCREASED [None]
